FAERS Safety Report 21294746 (Version 1)
Quarter: 2022Q3

REPORT INFORMATION
  Report Type: Report from Study
  Country: BR (occurrence: BR)
  Receive Date: 20220905
  Receipt Date: 20220905
  Transmission Date: 20221027
  Serious: Yes (Other)
  Sender: FDA-Public Use
  Company Number: BR-NOVARTISPH-NVSC2022BR199334

PATIENT
  Sex: Male

DRUGS (2)
  1. TAFINLAR [Suspect]
     Active Substance: DABRAFENIB MESYLATE
     Indication: Product used for unknown indication
     Dosage: 75 MG
     Route: 065
  2. MEKINIST [Suspect]
     Active Substance: TRAMETINIB DIMETHYL SULFOXIDE
     Indication: Product used for unknown indication
     Dosage: 2 MG
     Route: 065

REACTIONS (11)
  - Metastases to lung [Unknown]
  - Neoplasm [Unknown]
  - Stiff tongue [Unknown]
  - Dysarthria [Unknown]
  - Feeling abnormal [Unknown]
  - Fear [Unknown]
  - Tremor [Unknown]
  - Flatulence [Unknown]
  - Eructation [Unknown]
  - Malaise [Unknown]
  - Abdominal pain [Unknown]
